FAERS Safety Report 6478206-X (Version None)
Quarter: 2009Q4

REPORT INFORMATION
  Report Type: 
  Country: None (occurrence: None)
  Receive Date: 20091119
  Receipt Date: 20090728
  Transmission Date: 20100525
  Serious: Yes (Other)
  Sender: FDA-Public Use
  Company Number: 2009-199140-NL

PATIENT
  Age: 25 Year
  Sex: Female

DRUGS (4)
  1. IMPLANON [Suspect]
     Indication: DRUG USE FOR UNKNOWN INDICATION
     Dosage: SBDE
     Dates: start: 20030101, end: 20060101
  2. IMPLANON [Suspect]
     Indication: DRUG USE FOR UNKNOWN INDICATION
     Dosage: SBDE
     Dates: start: 20060801, end: 20090618
  3. IMPLANON [Suspect]
     Indication: DRUG USE FOR UNKNOWN INDICATION
     Dosage: SBDE
     Dates: start: 20090618
  4. ANTIDEPRESSANTS [Concomitant]

REACTIONS (7)
  - ABORTION SPONTANEOUS [None]
  - DEVICE FAILURE [None]
  - DRUG EXPOSURE DURING PREGNANCY [None]
  - MALAISE [None]
  - PREGNANCY [None]
  - STRESS [None]
  - WEIGHT DECREASED [None]
